FAERS Safety Report 14920300 (Version 1)
Quarter: 2018Q2

REPORT INFORMATION
  Report Type: Spontaneous
  Country: JP (occurrence: JP)
  Receive Date: 20180521
  Receipt Date: 20180521
  Transmission Date: 20180711
  Serious: Yes (Disabling, Other)
  Sender: FDA-Public Use
  Company Number: PHJP2018JP011086

PATIENT
  Age: 47 Year
  Sex: Male

DRUGS (1)
  1. TEGRETOL [Suspect]
     Active Substance: CARBAMAZEPINE
     Indication: PRODUCT USED FOR UNKNOWN INDICATION
     Dosage: UNK
     Route: 048
     Dates: start: 201510, end: 201511

REACTIONS (4)
  - Endocarditis [Unknown]
  - Mental impairment [Unknown]
  - Drug reaction with eosinophilia and systemic symptoms [Unknown]
  - Cerebral haemorrhage [Unknown]
